FAERS Safety Report 7387149-9 (Version None)
Quarter: 2011Q1

REPORT INFORMATION
  Report Type: 
  Country: None (occurrence: None)
  Receive Date: 20110331
  Receipt Date: 20110324
  Transmission Date: 20110831
  Serious: Yes (Hospitalization)
  Sender: FDA-Public Use
  Company Number: A0919839A

PATIENT
  Age: 61 Year
  Sex: Male

DRUGS (12)
  1. VYTORIN [Concomitant]
  2. VALTREX [Suspect]
     Indication: HERPES OPHTHALMIC
     Dosage: 500MG PER DAY
     Route: 048
     Dates: start: 20010101
  3. POTASSIUM CHLORIDE [Concomitant]
  4. ENALAPRIL MALEATE [Concomitant]
  5. LOPID [Concomitant]
  6. TRICOR [Concomitant]
  7. LASIX [Concomitant]
  8. VASOTEC [Concomitant]
  9. AVANDIA [Concomitant]
  10. CELEBREX [Concomitant]
  11. BENICAR [Concomitant]
  12. OXYGEN [Concomitant]

REACTIONS (5)
  - ABDOMINAL PAIN UPPER [None]
  - DIARRHOEA [None]
  - NAUSEA [None]
  - INJURY [None]
  - THROMBOSIS [None]
